FAERS Safety Report 5474909-4 (Version None)
Quarter: 2007Q3

REPORT INFORMATION
  Report Type: 
  Country: None (occurrence: None)
  Receive Date: 20070831
  Receipt Date: 20070613
  Transmission Date: 20080115
  Serious: No
  Sender: FDA-Public Use
  Company Number: 240879

PATIENT
  Age: 85 Year
  Sex: Female

DRUGS (4)
  1. LUCENTIS [Suspect]
     Indication: MACULAR DEGENERATION
     Dosage: INTRAVITREAL
     Dates: start: 20070401
  2. ANTIBIOTIC (ANTIBIOTICS NOS) [Concomitant]
  3. XANAX [Concomitant]
  4. PRESERVISION NOS (VITAMINS AND MINERALS) [Concomitant]

REACTIONS (1)
  - EYE DISCHARGE [None]
